FAERS Safety Report 23618258 (Version 1)
Quarter: 2024Q1

REPORT INFORMATION
  Report Type: Report from Study
  Country: US (occurrence: US)
  Receive Date: 20240311
  Receipt Date: 20240311
  Transmission Date: 20240409
  Serious: Yes (Hospitalization, Other)
  Sender: FDA-Public Use
  Company Number: US-002147023-NVSC2022US145505

PATIENT
  Sex: Female
  Weight: 84.807 kg

DRUGS (9)
  1. ADEMPAS [Suspect]
     Active Substance: RIOCIGUAT
     Dosage: 0.5 MG, TID (DOSE REDUCED)
     Route: 065
  2. ADEMPAS [Suspect]
     Active Substance: RIOCIGUAT
     Dosage: 2 MG
     Route: 065
     Dates: start: 20220720
  3. ADEMPAS [Suspect]
     Active Substance: RIOCIGUAT
     Indication: Product used for unknown indication
     Dosage: UNK
     Route: 065
  4. TREPROSTINIL [Suspect]
     Active Substance: TREPROSTINIL
     Dosage: 89 NG/KG/MIN, CONT
     Route: 042
  5. TREPROSTINIL [Suspect]
     Active Substance: TREPROSTINIL
     Indication: Pulmonary arterial hypertension
     Dosage: 95 NG/KG/MIN, CONT
     Route: 042
     Dates: start: 20190628
  6. TREPROSTINIL [Suspect]
     Active Substance: TREPROSTINIL
     Dosage: 85 NG/KG/MIN, CONT
     Route: 042
  7. TREPROSTINIL [Suspect]
     Active Substance: TREPROSTINIL
     Dosage: 78 NG/KG/ MI N
     Route: 042
     Dates: start: 20190628
  8. LASIX [Concomitant]
     Active Substance: FUROSEMIDE
     Dosage: 40 MG PM
     Route: 065
  9. LASIX [Concomitant]
     Active Substance: FUROSEMIDE
     Indication: Product used for unknown indication
     Dosage: 80 MG, AM
     Route: 065

REACTIONS (6)
  - Sepsis [Unknown]
  - Hypotension [Unknown]
  - Sluggishness [Unknown]
  - Lethargy [Unknown]
  - Seasonal allergy [Unknown]
  - Swelling [Unknown]
